FAERS Safety Report 7303695-8 (Version None)
Quarter: 2011Q1

REPORT INFORMATION
  Report Type: 
  Country: None (occurrence: None)
  Receive Date: 20110221
  Receipt Date: 20110209
  Transmission Date: 20110831
  Serious: Yes (Hospitalization)
  Sender: FDA-Public Use
  Company Number: JP-AMGEN-JPNCT2011009785

PATIENT
  Age: 67 Year
  Sex: Male
  Weight: 86 kg

DRUGS (14)
  1. ZANTAC                             /00550801/ [Concomitant]
     Dosage: UNK
     Route: 042
  2. CALCIUM LEVOFOLINATE [Concomitant]
     Indication: COLORECTAL CANCER
     Route: 041
     Dates: start: 20101201
  3. ALOXI [Concomitant]
     Dosage: UNK
     Route: 042
  4. FLUOROURACIL [Concomitant]
     Indication: COLORECTAL CANCER
     Route: 040
     Dates: start: 20101201
  5. FLUOROURACIL [Concomitant]
     Route: 041
     Dates: start: 20101201
  6. CORTICOSTEROIDS [Concomitant]
     Indication: PROPHYLAXIS
     Dosage: UNK
     Route: 065
  7. AMARYL [Concomitant]
     Dosage: UNK
     Route: 048
  8. FRANDOL [Concomitant]
     Dosage: UNK
     Route: 062
  9. RENIVACE [Concomitant]
     Dosage: UNK
     Route: 048
  10. PANITUMUMAB [Suspect]
     Indication: COLORECTAL CANCER METASTATIC
     Dosage: 6 MG/KG, Q2WK
     Route: 041
     Dates: start: 20101201
  11. DEXART [Concomitant]
     Dosage: UNK
     Route: 042
  12. OXALIPLATIN [Concomitant]
     Indication: COLORECTAL CANCER
     Route: 041
     Dates: start: 20101201
  13. MAGNESIUM SULFATE [Concomitant]
     Dosage: UNK
     Route: 042
  14. CALCICOL [Concomitant]
     Dosage: UNK
     Route: 042

REACTIONS (2)
  - DERMATITIS ACNEIFORM [None]
  - PNEUMONIA [None]
